FAERS Safety Report 10056771 (Version 1)
Quarter: 2014Q2

REPORT INFORMATION
  Report Type: Spontaneous
  Country: FR (occurrence: FR)
  Receive Date: 20140403
  Receipt Date: 20140403
  Transmission Date: 20141212
  Serious: Yes (Hospitalization)
  Sender: FDA-Public Use
  Company Number: FR-GLAXOSMITHKLINE-B0982077A

PATIENT
  Age: 78 Year
  Sex: Male

DRUGS (5)
  1. VOTRIENT [Suspect]
     Indication: LEIOMYOSARCOMA
     Dosage: 600MG PER DAY
     Route: 048
     Dates: start: 201312, end: 20140210
  2. PREVISCAN (FLUINDIONE) [Suspect]
     Indication: PRODUCT USED FOR UNKNOWN INDICATION
     Dosage: 20MG PER DAY
     Route: 048
     Dates: start: 2008, end: 20140207
  3. PLAVIX [Suspect]
     Indication: PRODUCT USED FOR UNKNOWN INDICATION
     Dosage: 75MG PER DAY
     Route: 048
     Dates: start: 2008, end: 20140207
  4. APROVEL [Concomitant]
     Dosage: 175MG PER DAY
     Route: 048
  5. APROVEL [Concomitant]
     Dosage: 75MG PER DAY
     Route: 048

REACTIONS (5)
  - Epistaxis [Recovered/Resolved]
  - Haematemesis [Recovered/Resolved]
  - Rectal haemorrhage [Recovered/Resolved]
  - Melaena [Recovered/Resolved]
  - Anaemia [Recovering/Resolving]
